FAERS Safety Report 4851808-X (Version None)
Quarter: 2005Q4

REPORT INFORMATION
  Report Type: 
  Country: None (occurrence: None)
  Receive Date: 20051209
  Receipt Date: 20051201
  Transmission Date: 20060501
  Serious: Yes (Other)
  Sender: FDA-Public Use
  Company Number: 2005163724

PATIENT
  Age: 36 Year
  Sex: Female
  Weight: 66.6788 kg

DRUGS (4)
  1. ZOLOFT [Suspect]
     Indication: SCHIZOAFFECTIVE DISORDER
     Dosage: (100 MG), ORAL
     Route: 048
     Dates: start: 20050701, end: 20051001
  2. LEXAPRO [Concomitant]
  3. NEXIUM [Concomitant]
  4. HALDOL [Concomitant]

REACTIONS (5)
  - DISEASE RECURRENCE [None]
  - DRUG EXPOSURE DURING PREGNANCY [None]
  - MANIA [None]
  - PRE-ECLAMPSIA [None]
  - WEIGHT INCREASED [None]
